FAERS Safety Report 7507583-3 (Version None)
Quarter: 2011Q2

REPORT INFORMATION
  Report Type: 
  Country: None (occurrence: None)
  Receive Date: 20110526
  Receipt Date: 20101021
  Transmission Date: 20111010
  Serious: Yes (Other)
  Sender: FDA-Public Use
  Company Number: US-AMGEN-USASP2010000991

PATIENT
  Sex: Female

DRUGS (2)
  1. VENOFER [Concomitant]
  2. ARANESP [Suspect]
     Indication: RENAL FAILURE CHRONIC
     Dosage: UNK
     Dates: start: 20101001

REACTIONS (5)
  - DIZZINESS [None]
  - HEADACHE [None]
  - THROMBOSIS [None]
  - MYALGIA [None]
  - MUSCLE SPASMS [None]
